FAERS Safety Report 5163253-0 (Version None)
Quarter: 2006Q4

REPORT INFORMATION
  Report Type: 
  Country: None (occurrence: None)
  Receive Date: 20061204
  Receipt Date: 20061121
  Transmission Date: 20070319
  Serious: Yes (Hospitalization)
  Sender: FDA-Public Use
  Company Number: DE-BAYER-200611567BVD

PATIENT
  Age: 69 Year
  Sex: Female
  Weight: 67 kg

DRUGS (4)
  1. SORAFENIB [Suspect]
     Indication: NON-SMALL CELL LUNG CANCER
     Route: 048
     Dates: start: 20061117, end: 20061121
  2. CARBOPLATIN [Suspect]
     Indication: NON-SMALL CELL LUNG CANCER
     Route: 042
     Dates: start: 20061116, end: 20061116
  3. PACLITAXEL [Suspect]
     Indication: NON-SMALL CELL LUNG CANCER
     Route: 042
     Dates: start: 20061116, end: 20061116
  4. JODID [Concomitant]
     Route: 048
     Dates: start: 19850101

REACTIONS (4)
  - ATRIAL FIBRILLATION [None]
  - BLOOD PRESSURE SYSTOLIC ABNORMAL [None]
  - DIZZINESS [None]
  - TACHYARRHYTHMIA [None]
